FAERS Safety Report 6734369-X (Version None)
Quarter: 2010Q2

REPORT INFORMATION
  Report Type: 
  Country: None (occurrence: None)
  Receive Date: 20100520
  Receipt Date: 20100406
  Transmission Date: 20101027
  Serious: Yes (Death, Hospitalization, Other)
  Sender: FDA-Public Use
  Company Number: PHEH2009US17502

PATIENT
  Sex: Male

DRUGS (14)
  1. EXJADE [Suspect]
     Indication: MYELODYSPLASTIC SYNDROME
     Dosage: 1500 MG, QD
     Route: 048
     Dates: start: 20070524
  2. EXJADE [Suspect]
     Dosage: 1375 MG, QD
     Route: 048
  3. EXJADE [Suspect]
     Dosage: 1875 MG, QD
     Route: 048
  4. EXJADE [Suspect]
     Dosage: 1000 MG, QD
     Route: 048
     Dates: start: 20090202
  5. EXJADE [Suspect]
     Dosage: 1500 MG, QD
     Route: 048
     Dates: start: 20090506
  6. EXJADE [Suspect]
     Dosage: 1000 MG, QD
     Route: 048
     Dates: start: 20091007
  7. REVLIMID [Concomitant]
     Dosage: UNK
     Dates: start: 20090201, end: 20090401
  8. BACTRIM DS [Concomitant]
     Dosage: 1 UNK, BID
  9. LASIX [Concomitant]
     Dosage: 20 MG DAILY
  10. IMODIUM [Concomitant]
  11. POTASSIUM [Concomitant]
  12. GROWTH FACTORS [Concomitant]
  13. RED BLOOD CELLS [Concomitant]
  14. PLATELETS [Concomitant]

REACTIONS (18)
  - ABDOMINAL DISTENSION [None]
  - BLOOD SODIUM INCREASED [None]
  - CORONARY ARTERY DISEASE [None]
  - DEHYDRATION [None]
  - DEMENTIA [None]
  - DIARRHOEA [None]
  - FATIGUE [None]
  - GASTROINTESTINAL SOUNDS ABNORMAL [None]
  - HAEMATURIA [None]
  - INTESTINAL OBSTRUCTION [None]
  - LEUKAEMIA [None]
  - MENTAL STATUS CHANGES [None]
  - MULTI-ORGAN FAILURE [None]
  - OEDEMA PERIPHERAL [None]
  - RALES [None]
  - RASH [None]
  - RENAL FAILURE [None]
  - URINARY TRACT INFECTION [None]
